FAERS Safety Report 23117778 (Version 1)
Quarter: 2023Q4

REPORT INFORMATION
  Report Type: Spontaneous
  Country: KR (occurrence: KR)
  Receive Date: 20231027
  Receipt Date: 20231027
  Transmission Date: 20240110
  Serious: Yes (Other)
  Sender: FDA-Public Use
  Company Number: KR-GUERBET / KOREA-KR-20230023

PATIENT
  Age: 56 Year
  Sex: Male

DRUGS (1)
  1. LIPIODOL [Suspect]
     Active Substance: ETHIODIZED OIL
     Indication: Transcatheter arterial chemoembolisation
     Route: 013

REACTIONS (1)
  - Biliary ischaemia [Unknown]
